FAERS Safety Report 18648067 (Version 1)
Quarter: 2020Q4

REPORT INFORMATION
  Report Type: Spontaneous
  Country: US (occurrence: US)
  Receive Date: 20201222
  Receipt Date: 20201222
  Transmission Date: 20210114
  Serious: No
  Sender: FDA-Public Use
  Company Number: US-ASTRAZENECA-2020SF57294

PATIENT
  Age: 55 Year
  Sex: Female
  Weight: 77.1 kg

DRUGS (1)
  1. FARXIGA [Suspect]
     Active Substance: DAPAGLIFLOZIN PROPANEDIOL
     Indication: TYPE 2 DIABETES MELLITUS
     Route: 048

REACTIONS (5)
  - Hyperglycaemia [Unknown]
  - Hypophagia [Unknown]
  - Hypertension [Unknown]
  - Pollakiuria [Unknown]
  - Headache [Unknown]

NARRATIVE: CASE EVENT DATE: 20201115
